FAERS Safety Report 7077279-3 (Version None)
Quarter: 2010Q4

REPORT INFORMATION
  Report Type: 
  Country: None (occurrence: None)
  Receive Date: 20101101
  Receipt Date: 20101020
  Transmission Date: 20110411
  Serious: Yes (Other)
  Sender: FDA-Public Use
  Company Number: GB-ACTELION-A-CH2010-36072

PATIENT
  Age: 23 Year
  Sex: Female
  Weight: 56 kg

DRUGS (3)
  1. TRACLEER [Suspect]
     Indication: PULMONARY ARTERIAL HYPERTENSION
     Dosage: UNK
     Route: 048
  2. TRACLEER [Suspect]
     Dosage: UNK
     Route: 048
  3. VENTAVIS [Suspect]
     Indication: PULMONARY ARTERIAL HYPERTENSION
     Route: 055

REACTIONS (8)
  - CAESAREAN SECTION [None]
  - CARDIO-RESPIRATORY ARREST [None]
  - CATHETERISATION CARDIAC [None]
  - GENERAL PHYSICAL HEALTH DETERIORATION [None]
  - NORMAL NEWBORN [None]
  - PREGNANCY [None]
  - PREMATURE BABY [None]
  - RESUSCITATION [None]
